FAERS Safety Report 9669308 (Version 1)
Quarter: 2013Q4

REPORT INFORMATION
  Report Type: Report from Study
  Country: BE (occurrence: BE)
  Receive Date: 20131105
  Receipt Date: 20131105
  Transmission Date: 20140711
  Serious: Yes (Other)
  Sender: FDA-Public Use
  Company Number: BE-ROCHE-1297809

PATIENT
  Age: 60 Year
  Sex: Female
  Weight: 104 kg

DRUGS (3)
  1. BEVACIZUMAB [Suspect]
     Indication: OVARIAN CANCER
     Route: 042
     Dates: start: 20130502, end: 20130912
  2. GEMCITABINE [Suspect]
     Indication: OVARIAN CANCER
     Route: 042
     Dates: start: 20130502, end: 20130822
  3. CARBOPLATIN [Suspect]
     Indication: OVARIAN CANCER
     Dosage: AUC
     Route: 042
     Dates: start: 20130502, end: 20130822

REACTIONS (1)
  - Amaurosis fugax [Recovered/Resolved]
